FAERS Safety Report 20601052 (Version 1)
Quarter: 2022Q1

REPORT INFORMATION
  Report Type: Report from Study
  Country: CA (occurrence: CA)
  Receive Date: 20220316
  Receipt Date: 20220316
  Transmission Date: 20220423
  Serious: Yes (Hospitalization, Other)
  Sender: FDA-Public Use
  Company Number: CA-JNJFOC-20210356613

PATIENT
  Age: 45 Year
  Sex: Female

DRUGS (1)
  1. REMICADE [Suspect]
     Active Substance: INFLIXIMAB
     Indication: Crohn^s disease
     Route: 042
     Dates: start: 20110202

REACTIONS (12)
  - Fistula [Not Recovered/Not Resolved]
  - Uterine cancer [Unknown]
  - Anal abscess [Unknown]
  - Crohn^s disease [Not Recovered/Not Resolved]
  - Heavy menstrual bleeding [Unknown]
  - Blood iron decreased [Unknown]
  - Tachycardia [Unknown]
  - Uterine leiomyoma [Unknown]
  - Anaemia [Unknown]
  - Off label use [Unknown]
  - Product use issue [Unknown]
  - Post procedural inflammation [Unknown]

NARRATIVE: CASE EVENT DATE: 20210101
